FAERS Safety Report 13978159 (Version 2)
Quarter: 2017Q3

REPORT INFORMATION
  Report Type: Spontaneous
  Country: JP (occurrence: JP)
  Receive Date: 20170915
  Receipt Date: 20170928
  Transmission Date: 20171128
  Serious: Yes (Other)
  Sender: FDA-Public Use
  Company Number: JP-TEVA-805124ROM

PATIENT
  Age: 40 Year
  Sex: Female
  Weight: 49 kg

DRUGS (3)
  1. BENZYLPENICILLIN [Suspect]
     Active Substance: PENICILLIN G
     Indication: ANTIBIOTIC THERAPY
     Dosage: FROM DAY 2 TO DAY 14 OF TREATMENT
     Route: 065
  2. CLINDAMYCIN. [Suspect]
     Active Substance: CLINDAMYCIN
     Indication: ANTIBIOTIC THERAPY
     Dosage: FROM DAY 4 TO DAY 14 OF TREATMENT
     Route: 065
  3. IBUPROFEN. [Suspect]
     Active Substance: IBUPROFEN
     Dosage: 1-2 TIMES/DAY
     Route: 048

REACTIONS (7)
  - Toxic shock syndrome streptococcal [Unknown]
  - Renal impairment [Recovering/Resolving]
  - Disseminated intravascular coagulation [Unknown]
  - Pyrexia [Unknown]
  - Chest X-ray abnormal [Unknown]
  - Acute respiratory failure [Unknown]
  - Rash [Unknown]
